FAERS Safety Report 9435092 (Version 1)
Quarter: 2013Q3

REPORT INFORMATION
  Report Type: Spontaneous
  Country: TR (occurrence: None)
  Receive Date: 20130730
  Receipt Date: 20130730
  Transmission Date: 20140515
  Serious: Yes (Other)
  Sender: FDA-Public Use
  Company Number: 2013P1012939

PATIENT
  Age: 64 Year
  Sex: Female

DRUGS (1)
  1. METRONIDAZOLE [Suspect]
     Indication: COLITIS ULCERATIVE

REACTIONS (4)
  - Toxicity to various agents [None]
  - Ataxia [None]
  - Dysarthria [None]
  - Nuclear magnetic resonance imaging abnormal [None]
